FAERS Safety Report 5389885-2 (Version None)
Quarter: 2007Q3

REPORT INFORMATION
  Report Type: 
  Country: None (occurrence: None)
  Receive Date: 20070718
  Receipt Date: 20070710
  Transmission Date: 20080115
  Serious: Yes (Other)
  Sender: FDA-Public Use
  Company Number: PHBS2007BR10337

PATIENT
  Age: 48 Year
  Sex: Female
  Weight: 60 kg

DRUGS (3)
  1. CODATEN [Suspect]
     Indication: PAIN IN EXTREMITY
     Dosage: 1 DF, Q8H
     Route: 048
     Dates: start: 20070615, end: 20070616
  2. AMLODIPINE [Concomitant]
     Indication: HYPERTENSION
     Dosage: 1 TABLET/DAY
     Route: 048
  3. SELOZOK [Concomitant]
     Indication: HYPERTENSION
     Dosage: 1 TABLET/DAY
     Route: 048

REACTIONS (8)
  - ABDOMINAL DISCOMFORT [None]
  - APHASIA [None]
  - BALANCE DISORDER [None]
  - DIZZINESS [None]
  - DYSGEUSIA [None]
  - MUSCLE SPASMS [None]
  - SKIN DISCOLOURATION [None]
  - VOMITING [None]
